FAERS Safety Report 9257219 (Version 28)
Quarter: 2020Q2

REPORT INFORMATION
  Report Type: Report from Study
  Country: CA (occurrence: CA)
  Receive Date: 20130426
  Receipt Date: 20200608
  Transmission Date: 20200714
  Serious: Yes (Other)
  Sender: FDA-Public Use
  Company Number: PHHY2013CA016378

PATIENT
  Age: 52 Year
  Sex: Male

DRUGS (6)
  1. SANDOSTATIN LAR DEPOT [Suspect]
     Active Substance: OCTREOTIDE ACETATE
     Dosage: 30 MG, QMO
     Route: 030
     Dates: start: 20141223
  2. SANDOSTATIN LAR DEPOT [Suspect]
     Active Substance: OCTREOTIDE ACETATE
     Indication: CARCINOID SYNDROME
     Dosage: 30 MG, QMO (EVERY THREE WEEKS)
     Route: 030
     Dates: start: 20130115
  3. APO-HYDRO [Concomitant]
     Active Substance: HYDROCHLOROTHIAZIDE
     Indication: PRODUCT USED FOR UNKNOWN INDICATION
     Dosage: 12.5 MG, QD (FOR A MONTH)
     Route: 065
  4. OCTREOTIDE ACETATE. [Concomitant]
     Active Substance: OCTREOTIDE ACETATE
     Indication: PRODUCT USED FOR UNKNOWN INDICATION
     Dosage: UNK UNK, TID
     Route: 058
  5. SANDOSTATIN LAR DEPOT [Suspect]
     Active Substance: OCTREOTIDE ACETATE
     Dosage: 20 MG, QMO
     Route: 030
     Dates: start: 20130115, end: 20141124
  6. CODEINE [Concomitant]
     Active Substance: CODEINE
     Indication: PRODUCT USED FOR UNKNOWN INDICATION
     Dosage: 30 MG, (EVERY 4 HOURS)
     Route: 065
     Dates: start: 20161021

REACTIONS (22)
  - Feeling hot [Not Recovered/Not Resolved]
  - Skin laceration [Unknown]
  - Tachycardia [Unknown]
  - Fatigue [Unknown]
  - Respiratory rate increased [Unknown]
  - Insomnia [Unknown]
  - Pain [Not Recovered/Not Resolved]
  - Influenza like illness [Unknown]
  - Oedema [Not Recovered/Not Resolved]
  - Depression [Unknown]
  - Pyrexia [Unknown]
  - Discomfort [Unknown]
  - Body temperature decreased [Unknown]
  - Influenza [Unknown]
  - Malaise [Unknown]
  - Arthralgia [Unknown]
  - Dizziness [Unknown]
  - Headache [Unknown]
  - Anxiety [Unknown]
  - Pneumonia [Unknown]
  - Blood pressure increased [Unknown]
  - Erythema [Not Recovered/Not Resolved]

NARRATIVE: CASE EVENT DATE: 201607
